FAERS Safety Report 5093546-7 (Version None)
Quarter: 2006Q3

REPORT INFORMATION
  Report Type: 
  Country: None (occurrence: None)
  Receive Date: 20060829
  Receipt Date: 20060817
  Transmission Date: 20061208
  Serious: Yes (Other)
  Sender: FDA-Public Use
  Company Number: 2006100382

PATIENT
  Age: 43 Year
  Sex: Male

DRUGS (5)
  1. DIFLUCAN [Suspect]
     Indication: COCCIDIOIDOMYCOSIS
     Dosage: ORAL
     Route: 048
     Dates: start: 19980101, end: 20060101
  2. VFEND [Suspect]
     Indication: COCCIDIOIDOMYCOSIS
     Dosage: 800 MG (400 MG,2 IN 1 D), ORAL
     Route: 048
     Dates: start: 19990101
  3. DOXYCYCLINE [Suspect]
     Indication: ERYTHEMA
     Dates: start: 20060101
  4. SUSTIVA [Suspect]
     Indication: HIV INFECTION
  5. PERCOCET [Concomitant]

REACTIONS (10)
  - BRAIN DAMAGE [None]
  - COCCIDIOIDOMYCOSIS [None]
  - DRUG INTERACTION [None]
  - FEELING HOT [None]
  - PARAESTHESIA [None]
  - RASH PRURITIC [None]
  - SENSORY LOSS [None]
  - SWELLING FACE [None]
  - TREATMENT NONCOMPLIANCE [None]
  - URTICARIA [None]
